FAERS Safety Report 8567355-8 (Version None)
Quarter: 2012Q3

REPORT INFORMATION
  Report Type: 
  Country: None (occurrence: None)
  Receive Date: 20120803
  Receipt Date: 20120730
  Transmission Date: 20120928
  Serious: Yes (Other)
  Sender: FDA-Public Use
  Company Number: PHHY2012US065892

PATIENT
  Age: 84 Year
  Sex: Male

DRUGS (1)
  1. ASPIRIN [Suspect]
     Indication: PAIN
     Dosage: 1 DF, QD

REACTIONS (3)
  - VISUAL ACUITY REDUCED [None]
  - INCORRECT DRUG ADMINISTRATION DURATION [None]
  - CATARACT [None]
